FAERS Safety Report 25575683 (Version 1)
Quarter: 2025Q3

REPORT INFORMATION
  Report Type: Spontaneous
  Country: EU (occurrence: EU)
  Receive Date: 20250718
  Receipt Date: 20250718
  Transmission Date: 20251020
  Serious: Yes (Other)
  Sender: AUROBINDO
  Company Number: EU-INFARMED-M202506-1020

PATIENT
  Age: 58 Year
  Sex: Male
  Weight: 71.8 kg

DRUGS (4)
  1. OXALIPLATIN [Suspect]
     Active Substance: OXALIPLATIN
     Indication: Colon cancer
     Route: 042
     Dates: start: 20250618, end: 20250618
  2. Fluorouracilo Hikma [Concomitant]
     Indication: Colon cancer
     Route: 042
  3. Clemastina [Concomitant]
     Indication: Product used for unknown indication
     Route: 042
     Dates: start: 20250628
  4. HYDROCORTISONE [Concomitant]
     Active Substance: HYDROCORTISONE
     Indication: Product used for unknown indication
     Route: 042
     Dates: start: 20250628

REACTIONS (5)
  - Drug hypersensitivity [Recovered/Resolved]
  - Cough [Recovered/Resolved]
  - Flushing [Recovered/Resolved]
  - Rhinorrhoea [Recovered/Resolved]
  - Dysphonia [Recovered/Resolved]

NARRATIVE: CASE EVENT DATE: 20250618
